FAERS Safety Report 20616065 (Version 3)
Quarter: 2022Q1

REPORT INFORMATION
  Report Type: Report from Study
  Country: US (occurrence: US)
  Receive Date: 20220321
  Receipt Date: 20220329
  Transmission Date: 20220423
  Serious: Yes (Hospitalization)
  Sender: FDA-Public Use
  Company Number: US-JNJFOC-20220331940

PATIENT
  Age: 21 Year
  Sex: Male
  Weight: 61.290 kg

DRUGS (3)
  1. INFLIXIMAB [Suspect]
     Active Substance: INFLIXIMAB
     Indication: Inflammatory bowel disease
     Route: 042
     Dates: start: 20100914, end: 20130802
  2. STELARA [Concomitant]
     Active Substance: USTEKINUMAB
     Dates: start: 20200721
  3. STELARA [Concomitant]
     Active Substance: USTEKINUMAB
     Dates: start: 20210907

REACTIONS (1)
  - Crohn^s disease [Not Recovered/Not Resolved]

NARRATIVE: CASE EVENT DATE: 20211229
